FAERS Safety Report 18775896 (Version 1)
Quarter: 2021Q1

REPORT INFORMATION
  Report Type: Spontaneous
  Country: CH (occurrence: CH)
  Receive Date: 20210122
  Receipt Date: 20210122
  Transmission Date: 20210419
  Serious: Yes (Other)
  Sender: FDA-Public Use
  Company Number: CH-PFIZER INC-2021033900

PATIENT
  Age: 16 Week
  Sex: Female
  Weight: 1.93 kg

DRUGS (8)
  1. ISENTRESS [Suspect]
     Active Substance: RALTEGRAVIR POTASSIUM
     Indication: PROPHYLAXIS AGAINST HIV INFECTION
     Dosage: 400 MG, 2X/DAY
     Route: 064
     Dates: start: 20200525
  2. TRUVADA [Suspect]
     Active Substance: EMTRICITABINE\TENOFOVIR DISOPROXIL FUMARATE
     Indication: PROPHYLAXIS AGAINST HIV INFECTION
     Dosage: 1 DF, 1X/DAY
     Route: 064
     Dates: start: 20200525
  3. HALDOL [Suspect]
     Active Substance: HALOPERIDOL
     Dosage: 12 MG, 1X/DAY
     Route: 064
     Dates: start: 2020
  4. TEMESTA (LORAZEPAM) [Suspect]
     Active Substance: LORAZEPAM
     Dosage: UNK, AS NEEDED
     Route: 064
     Dates: start: 2020
  5. APROVEL [Suspect]
     Active Substance: IRBESARTAN
     Indication: HYPERTENSION
     Dosage: 300 MG, 1X/DAY
     Route: 064
     Dates: end: 2020
  6. AMLODIPINE BESILATE [Suspect]
     Active Substance: AMLODIPINE BESYLATE
     Indication: HYPERTENSION
     Dosage: 5 MG, 1X/DAY
     Route: 064
  7. AKINETON [Suspect]
     Active Substance: BIPERIDEN HYDROCHLORIDE
     Dosage: 4 MG, 1X/DAY
     Route: 064
     Dates: start: 2020
  8. CIPRALEX [Suspect]
     Active Substance: ESCITALOPRAM OXALATE
     Dosage: 20 MG, 1X/DAY
     Route: 064

REACTIONS (5)
  - Cardiac murmur [Unknown]
  - Premature baby [Recovered/Resolved]
  - Exposure during pregnancy [Recovered/Resolved]
  - Microcephaly [Recovered/Resolved]
  - Foetal growth restriction [Recovered/Resolved]

NARRATIVE: CASE EVENT DATE: 202001
